FAERS Safety Report 14601070 (Version 1)
Quarter: 2018Q1

REPORT INFORMATION
  Report Type: Spontaneous
  Country: SE (occurrence: SE)
  Receive Date: 20180305
  Receipt Date: 20180305
  Transmission Date: 20180509
  Serious: Yes (Other)
  Sender: FDA-Public Use
  Company Number: SE-IMPAX LABORATORIES, INC-2018-IPXL-00668

PATIENT
  Age: 28 Year
  Sex: Male

DRUGS (4)
  1. AMOXICILLIN. [Concomitant]
     Active Substance: AMOXICILLIN
     Indication: ASCARIASIS
     Dosage: UNK
     Route: 065
  2. IVERMECTIN. [Suspect]
     Active Substance: IVERMECTIN
     Indication: FILARIASIS
     Dosage: 12 MG, UNK
     Route: 065
  3. DICLOFENAC [Concomitant]
     Active Substance: DICLOFENAC
     Indication: ASCARIASIS
     Dosage: UNK
     Route: 065
  4. ALBENZA [Suspect]
     Active Substance: ALBENDAZOLE
     Indication: ASCARIASIS
     Dosage: UNK
     Route: 065

REACTIONS (1)
  - Loss of consciousness [Recovered/Resolved]
